FAERS Safety Report 8612478-8 (Version None)
Quarter: 2012Q3

REPORT INFORMATION
  Report Type: 
  Country: None (occurrence: None)
  Receive Date: 20120822
  Receipt Date: 20120814
  Transmission Date: 20120928
  Serious: No
  Sender: FDA-Public Use
  Company Number: US-ASTRAZENECA-2012SE57753

PATIENT
  Age: 76 Year
  Sex: Male

DRUGS (2)
  1. SYMBICORT [Suspect]
     Dosage: UNKNOWN
     Route: 055
  2. COMBIVENT [Concomitant]

REACTIONS (1)
  - UMBILICAL HERNIA [None]
